FAERS Safety Report 5084268-7 (Version None)
Quarter: 2006Q3

REPORT INFORMATION
  Report Type: 
  Country: None (occurrence: None)
  Receive Date: 20060817
  Receipt Date: 20060817
  Transmission Date: 20061208
  Serious: Yes (Life-Threatening)
  Sender: FDA-Public Use
  Company Number: None

PATIENT
  Sex: Female

DRUGS (2)
  1. ALBUTEROL [Suspect]
     Indication: ASTHMA
     Dosage: 2 PUFFS QD PRN
  2. ALBUTEROL [Suspect]
     Indication: MULTIPLE ALLERGIES
     Dosage: 2 PUFFS QD PRN

REACTIONS (1)
  - ANAPHYLACTIC REACTION [None]
